FAERS Safety Report 9233818 (Version 1)
Quarter: 2013Q2

REPORT INFORMATION
  Report Type: Spontaneous
  Country: US (occurrence: US)
  Receive Date: 20130416
  Receipt Date: 20130416
  Transmission Date: 20140414
  Serious: No
  Sender: FDA-Public Use
  Company Number: US-BANPHARM-20120047

PATIENT
  Age: 76 Year
  Sex: Male
  Weight: 79 kg

DRUGS (5)
  1. ALEVE LIQUID GELS 220 MG [Suspect]
     Indication: PAIN
     Dosage: 220 MG AS NEEDED ORAL
     Route: 048
     Dates: start: 20120730
  2. LIPITOR [Concomitant]
  3. FLOMAX [Concomitant]
  4. TAMBOCOR [Concomitant]
  5. ALLOPURINOL [Concomitant]

REACTIONS (1)
  - Drug effect incomplete [Unknown]
